FAERS Safety Report 4504342-0 (Version None)
Quarter: 2004Q4

REPORT INFORMATION
  Report Type: 
  Country: None (occurrence: None)
  Receive Date: 20041118
  Receipt Date: 20041108
  Transmission Date: 20050328
  Serious: Yes (Other)
  Sender: FDA-Public Use
  Company Number: US-NOVOPROD-240426

PATIENT

DRUGS (1)
  1. NOVOSEVEN [Suspect]
     Indication: FACTOR XI DEFICIENCY
     Dosage: UNKNOWN
     Route: 042

REACTIONS (2)
  - POST PROCEDURAL COMPLICATION [None]
  - SHOULDER OPERATION [None]
